FAERS Safety Report 6460745-9 (Version None)
Quarter: 2009Q4

REPORT INFORMATION
  Report Type: 
  Country: None (occurrence: None)
  Receive Date: 20091130
  Receipt Date: 20091119
  Transmission Date: 20100525
  Serious: Yes (Hospitalization)
  Sender: FDA-Public Use
  Company Number: GB-ASTRAZENECA-2009SE27652

PATIENT
  Sex: Male

DRUGS (2)
  1. QUETIAPINE [Suspect]
     Route: 048
  2. CLOZARIL [Suspect]
     Indication: SCHIZOPHRENIA
     Route: 048
     Dates: start: 20080704

REACTIONS (2)
  - OVERDOSE [None]
  - SOMNOLENCE [None]
